FAERS Safety Report 4840262-X (Version None)
Quarter: 2005Q4

REPORT INFORMATION
  Report Type: 
  Country: None (occurrence: None)
  Receive Date: 20051129
  Receipt Date: 20051004
  Transmission Date: 20060501
  Serious: Yes (Hospitalization, Disabling, Other)
  Sender: FDA-Public Use
  Company Number: US-MERCK-0510USA02402

PATIENT
  Age: 41 Year
  Sex: Male
  Weight: 118 kg

DRUGS (9)
  1. VIOXX [Suspect]
     Indication: LOCALISED INFECTION
     Route: 048
     Dates: start: 20031204, end: 20040201
  2. AVANDIA [Concomitant]
     Route: 065
  3. GLUCOTROL XL [Concomitant]
     Route: 065
  4. ASPIRIN [Concomitant]
     Route: 065
  5. COUMADIN [Concomitant]
     Route: 065
  6. PREVACID [Concomitant]
     Route: 065
  7. ZOCOR [Concomitant]
     Route: 065
  8. LOTENSIN [Concomitant]
     Route: 065
  9. COZAAR [Concomitant]
     Route: 065

REACTIONS (3)
  - DIABETIC FOOT INFECTION [None]
  - MYOCARDIAL INFARCTION [None]
  - TOE AMPUTATION [None]
